FAERS Safety Report 6578666-X (Version None)
Quarter: 2010Q1

REPORT INFORMATION
  Report Type: 
  Country: None (occurrence: None)
  Receive Date: 20100202
  Receipt Date: 20100121
  Transmission Date: 20100710
  Serious: Yes (Other)
  Sender: FDA-Public Use
  Company Number: 2010AP000139

PATIENT
  Age: 52 Year
  Sex: Female

DRUGS (2)
  1. HYDROCHLOROTHIAZIDE [Suspect]
     Indication: HYPERTENSION
  2. P- PHENYLENEDIAMINE [Suspect]

REACTIONS (6)
  - BLEPHARITIS [None]
  - CROSS SENSITIVITY REACTION [None]
  - DERMATITIS ACNEIFORM [None]
  - DRUG INTOLERANCE [None]
  - POST INFLAMMATORY PIGMENTATION CHANGE [None]
  - PRURITUS [None]
